FAERS Safety Report 6055086-8 (Version None)
Quarter: 2009Q1

REPORT INFORMATION
  Report Type: 
  Country: None (occurrence: None)
  Receive Date: 20090122
  Receipt Date: 20090114
  Transmission Date: 20090719
  Serious: Yes (Other)
  Sender: FDA-Public Use
  Company Number: 2009SP000974

PATIENT
  Sex: Female

DRUGS (10)
  1. MIRALAX [Suspect]
     Indication: COLONOSCOPY
     Dosage: PO
     Route: 048
     Dates: start: 20090113
  2. MIRALAX [Suspect]
     Indication: OFF LABEL USE
     Dosage: PO
     Route: 048
     Dates: start: 20090113
  3. SYNTHROID [Concomitant]
  4. RELAFEN [Concomitant]
  5. PLAQUENIL [Concomitant]
  6. LASIX [Concomitant]
  7. TOPROL-XL [Concomitant]
  8. BENICAR [Concomitant]
  9. ZANX [Concomitant]
  10. KLOR-CON [Concomitant]

REACTIONS (5)
  - BLOOD PRESSURE DECREASED [None]
  - DIZZINESS [None]
  - HYPERSENSITIVITY [None]
  - RASH [None]
  - SYNCOPE [None]
